FAERS Safety Report 8502714-0 (Version None)
Quarter: 2012Q3

REPORT INFORMATION
  Report Type: 
  Country: None (occurrence: None)
  Receive Date: 20120706
  Receipt Date: 20120706
  Transmission Date: 20120928
  Serious: Yes (Life-Threatening)
  Sender: FDA-Public Use
  Company Number: None

PATIENT
  Age: 36 Year
  Sex: Female
  Weight: 73.9363 kg

DRUGS (1)
  1. BACTRIM DS [Suspect]
     Indication: SKIN INFECTION

REACTIONS (6)
  - BODY TEMPERATURE INCREASED [None]
  - HALLUCINATION [None]
  - PRODUCT QUALITY ISSUE [None]
  - SWOLLEN TONGUE [None]
  - DIARRHOEA [None]
  - HEART RATE INCREASED [None]
